FAERS Safety Report 10842464 (Version 1)
Quarter: 2015Q1

REPORT INFORMATION
  Report Type: Spontaneous
  Country: FR (occurrence: FR)
  Receive Date: 20150220
  Receipt Date: 20150220
  Transmission Date: 20150721
  Serious: Yes (Hospitalization)
  Sender: FDA-Public Use
  Company Number: FR-ROCHE-1540571

PATIENT
  Age: 77 Year
  Sex: Female

DRUGS (13)
  1. TAMIFLU [Suspect]
     Active Substance: OSELTAMIVIR PHOSPHATE
     Indication: INFLUENZA
     Route: 048
     Dates: start: 20150107, end: 20150112
  2. QVAR [Concomitant]
     Active Substance: BECLOMETHASONE DIPROPIONATE
  3. DAFALGAN CODEINE [Concomitant]
     Active Substance: ACETAMINOPHEN\CODEINE PHOSPHATE
  4. KARDEGIC [Concomitant]
     Active Substance: ASPIRIN LYSINE
  5. NOCTAMIDE [Concomitant]
     Active Substance: LORMETAZEPAM
  6. ATARAX [Concomitant]
     Active Substance: HYDROXYZINE\HYDROXYZINE HYDROCHLORIDE
  7. CRESTOR [Concomitant]
     Active Substance: ROSUVASTATIN CALCIUM
  8. SPECIAFOLDINE [Concomitant]
     Active Substance: FOLIC ACID
  9. AMOXICILLIN/CLAVULANIC ACID [Suspect]
     Active Substance: AMOXICILLIN\CLAVULANIC ACID
     Indication: INFECTION
     Dosage: ARROW
     Route: 048
     Dates: start: 20150103, end: 20150109
  10. AIROMIR [Concomitant]
     Active Substance: ALBUTEROL SULFATE
  11. METHOTREXATE [Concomitant]
     Active Substance: METHOTREXATE
  12. AUGMENTIN [Suspect]
     Active Substance: AMOXICILLIN\CLAVULANATE POTASSIUM
     Indication: INFECTION
     Route: 042
     Dates: start: 20150109, end: 20150112
  13. OMEPRAZOLE. [Concomitant]
     Active Substance: OMEPRAZOLE

REACTIONS (2)
  - Neutropenia [Recovered/Resolved]
  - Leukopenia [Recovered/Resolved]

NARRATIVE: CASE EVENT DATE: 20150112
